FAERS Safety Report 8178766-7 (Version None)
Quarter: 2012Q1

REPORT INFORMATION
  Report Type: 
  Country: None (occurrence: None)
  Receive Date: 20120301
  Receipt Date: 20120301
  Transmission Date: 20120608
  Serious: Yes (Hospitalization, Other)
  Sender: FDA-Public Use
  Company Number: None

PATIENT
  Age: 54 Year
  Sex: Female
  Weight: 126.09 kg

DRUGS (2)
  1. AVELOX [Suspect]
     Indication: CHRONIC OBSTRUCTIVE PULMONARY DISEASE
     Dosage: ONE PILL
     Route: 048
     Dates: start: 20110216, end: 20110222
  2. AVELOX [Suspect]
     Indication: CONDITION AGGRAVATED
     Dosage: ONE PILL
     Route: 048
     Dates: start: 20110216, end: 20110222

REACTIONS (26)
  - ARTHRALGIA [None]
  - BACK PAIN [None]
  - PARAESTHESIA [None]
  - PAIN [None]
  - ASTHENIA [None]
  - CONFUSIONAL STATE [None]
  - FEELING ABNORMAL [None]
  - CHEST DISCOMFORT [None]
  - MUSCULAR WEAKNESS [None]
  - ERYTHEMA [None]
  - LETHARGY [None]
  - DYSPNOEA [None]
  - PYREXIA [None]
  - VISION BLURRED [None]
  - OEDEMA PERIPHERAL [None]
  - SYNCOPE [None]
  - DEPRESSION [None]
  - OROPHARYNGEAL PAIN [None]
  - DIZZINESS [None]
  - OCULAR ICTERUS [None]
  - SWELLING FACE [None]
  - HYPOAESTHESIA [None]
  - CHEST PAIN [None]
  - HEART RATE IRREGULAR [None]
  - EYE SWELLING [None]
  - CHILLS [None]
